FAERS Safety Report 6007565-7 (Version None)
Quarter: 2008Q4

REPORT INFORMATION
  Report Type: 
  Country: None (occurrence: None)
  Receive Date: 20081217
  Receipt Date: 20080509
  Transmission Date: 20090506
  Serious: No
  Sender: FDA-Public Use
  Company Number: US-ASTRAZENECA-2008UW09657

PATIENT
  Age: 74 Year
  Sex: Female
  Weight: 81.7 kg

DRUGS (6)
  1. CRESTOR [Suspect]
     Indication: HYPERCHOLESTEROLAEMIA
     Route: 048
  2. ACTOS [Concomitant]
  3. PREVACID [Concomitant]
  4. COUMADIN [Concomitant]
  5. COREG [Concomitant]
  6. ALTACE [Concomitant]

REACTIONS (1)
  - PAIN IN EXTREMITY [None]
